FAERS Safety Report 23743505 (Version 1)
Quarter: 2024Q2

REPORT INFORMATION
  Report Type: Spontaneous
  Country: US (occurrence: None)
  Receive Date: 20240413
  Receipt Date: 20240413
  Transmission Date: 20240716
  Serious: Yes (Other)
  Sender: FDA-Public Use
  Company Number: None

PATIENT
  Age: 56 Year
  Sex: Male

DRUGS (1)
  1. OZEMPIC [Suspect]
     Active Substance: SEMAGLUTIDE
     Dates: start: 20230301

REACTIONS (5)
  - Diarrhoea [None]
  - Vomiting [None]
  - Hyperhidrosis [None]
  - Chills [None]
  - Influenza like illness [None]

NARRATIVE: CASE EVENT DATE: 20240412
